FAERS Safety Report 7517448-9 (Version None)
Quarter: 2011Q2

REPORT INFORMATION
  Report Type: 
  Country: None (occurrence: None)
  Receive Date: 20110601
  Receipt Date: 20110506
  Transmission Date: 20111010
  Serious: No
  Sender: FDA-Public Use
  Company Number: US-JNJFOC-20110503607

PATIENT
  Age: 37 Year
  Sex: Female

DRUGS (2)
  1. INVEGA SUSTENNA [Suspect]
     Indication: SCHIZOPHRENIA
     Route: 030
     Dates: start: 20110101
  2. INVEGA SUSTENNA [Suspect]
     Route: 030
     Dates: end: 20110101

REACTIONS (1)
  - GALACTORRHOEA [None]
